FAERS Safety Report 9444592 (Version 1)
Quarter: 2013Q3

REPORT INFORMATION
  Report Type: Spontaneous
  Country: US (occurrence: US)
  Receive Date: 20130807
  Receipt Date: 20130807
  Transmission Date: 20140515
  Serious: No
  Sender: FDA-Public Use
  Company Number: US-PFIZER INC-2013224302

PATIENT
  Age: 26 Year
  Sex: Female

DRUGS (5)
  1. FLAGYL [Suspect]
     Dosage: UNK
  2. LORTAB [Suspect]
     Dosage: UNK
  3. HYDROCODONE [Suspect]
     Dosage: UNK
  4. CODEINE [Suspect]
     Dosage: UNK
  5. PENICILLIN NOS [Suspect]

REACTIONS (1)
  - Drug hypersensitivity [Unknown]
